FAERS Safety Report 4884880-1 (Version None)
Quarter: 2006Q1

REPORT INFORMATION
  Report Type: 
  Country: None (occurrence: None)
  Receive Date: 20060119
  Receipt Date: 20060110
  Transmission Date: 20060701
  Serious: Yes (Death)
  Sender: FDA-Public Use
  Company Number: HK-GLAXOSMITHKLINE-B0407039A

PATIENT
  Age: 55 Year
  Sex: Female

DRUGS (1)
  1. MELPHALAN [Suspect]
     Route: 065

REACTIONS (1)
  - ACUTE MYELOID LEUKAEMIA [None]
